FAERS Safety Report 17469043 (Version 3)
Quarter: 2020Q2

REPORT INFORMATION
  Report Type: Report from Study
  Country: None (occurrence: DE)
  Receive Date: 20200227
  Receipt Date: 20200507
  Transmission Date: 20200713
  Serious: Yes (Hospitalization, Other)
  Sender: FDA-Public Use
  Company Number: DE-ABBVIE-20K-062-3289022-00

PATIENT
  Age: 67 Year
  Sex: Female

DRUGS (16)
  1. L-THYROXIN [Concomitant]
     Active Substance: LEVOTHYROXINE SODIUM
     Indication: PRODUCT USED FOR UNKNOWN INDICATION
     Dosage: 0.5/DAY
  2. TILIDIN [Concomitant]
     Active Substance: NALOXONE HYDROCHLORIDE\TILIDINE HYDROCHLORIDE
     Indication: PRODUCT USED FOR UNKNOWN INDICATION
     Dosage: 100/8 MG
  3. MOVICOL [Concomitant]
     Active Substance: POLYETHYLENE GLYCOL 3350\POTASSIUM CHLORIDE\SODIUM BICARBONATE\SODIUM CHLORIDE
     Indication: PRODUCT USED FOR UNKNOWN INDICATION
     Dosage: SACHET
  4. FRAGMIN [Concomitant]
     Active Substance: DALTEPARIN SODIUM
     Indication: PRODUCT USED FOR UNKNOWN INDICATION
     Route: 058
     Dates: start: 2020, end: 2020
  5. ESOMEPRAZOL [Concomitant]
     Active Substance: ESOMEPRAZOLE
     Indication: PRODUCT USED FOR UNKNOWN INDICATION
  6. ESOMEPRAZOL [Concomitant]
     Active Substance: ESOMEPRAZOLE
  7. CALCIUM [Concomitant]
     Active Substance: CALCIUM
     Indication: PRODUCT USED FOR UNKNOWN INDICATION
  8. HUMIRA [Suspect]
     Active Substance: ADALIMUMAB
     Indication: PSORIATIC ARTHROPATHY
  9. DICLOFENAC [Suspect]
     Active Substance: DICLOFENAC
     Indication: PRODUCT USED FOR UNKNOWN INDICATION
     Route: 065
  10. CANDESARTAN. [Concomitant]
     Active Substance: CANDESARTAN
     Indication: PRODUCT USED FOR UNKNOWN INDICATION
  11. OPIPRAMOL [Concomitant]
     Active Substance: OPIPRAMOL
     Indication: PRODUCT USED FOR UNKNOWN INDICATION
  12. FOLSAN [Concomitant]
     Active Substance: FOLIC ACID
     Indication: PRODUCT USED FOR UNKNOWN INDICATION
  13. HUMIRA [Suspect]
     Active Substance: ADALIMUMAB
     Indication: PSORIASIS
     Route: 058
     Dates: start: 20110907
  14. FERRO SANOL [Concomitant]
     Active Substance: FERROUS GLYCINE SULFATE
     Indication: PRODUCT USED FOR UNKNOWN INDICATION
  15. PROCORALAN [Concomitant]
     Active Substance: IVABRADINE
     Indication: PRODUCT USED FOR UNKNOWN INDICATION
  16. METAMIZOL [Concomitant]
     Active Substance: METAMIZOLE SODIUM
     Indication: PRODUCT USED FOR UNKNOWN INDICATION

REACTIONS (58)
  - Lymphadenopathy [Unknown]
  - Kyphosis [Unknown]
  - Gastric ulcer [Unknown]
  - Lordosis [Unknown]
  - Impaired quality of life [Unknown]
  - Red blood cell sedimentation rate increased [Unknown]
  - Mean cell haemoglobin concentration decreased [Unknown]
  - Gastritis [Unknown]
  - Aspartate aminotransferase increased [Unknown]
  - Upper gastrointestinal haemorrhage [Recovered/Resolved]
  - Thrombophlebitis [Unknown]
  - Hypothyroidism [Unknown]
  - Skin striae [Unknown]
  - Pneumobilia [Unknown]
  - Haematocrit decreased [Unknown]
  - Bile duct stone [Unknown]
  - Anaemia folate deficiency [Unknown]
  - Contrast media allergy [Unknown]
  - Cardiomegaly [Unknown]
  - Muscle spasms [Unknown]
  - Dry skin [Unknown]
  - Bundle branch block left [Unknown]
  - Portal hypertensive gastropathy [Unknown]
  - Blood iron decreased [Unknown]
  - Abdominal adhesions [Unknown]
  - Aortic arteriosclerosis [Unknown]
  - C-reactive protein increased [Unknown]
  - Mean cell haemoglobin decreased [Unknown]
  - White blood cell count increased [Unknown]
  - Osteochondrosis [Recovered/Resolved]
  - Varices oesophageal [Unknown]
  - Gastric antral vascular ectasia [Unknown]
  - Gastrointestinal tract adenoma [Unknown]
  - Iron deficiency anaemia [Unknown]
  - Bone marrow oedema [Unknown]
  - Spinal pain [Unknown]
  - Abdominal pain lower [Unknown]
  - Blood creatinine increased [Unknown]
  - Spinal pain [Unknown]
  - Hypertension [Unknown]
  - Spinal osteoarthritis [Unknown]
  - Drug hypersensitivity [Unknown]
  - Gait disturbance [Unknown]
  - Protein total decreased [Unknown]
  - Gastritis [Unknown]
  - Osteochondrosis [Unknown]
  - Blood calcium decreased [Unknown]
  - Gastritis erosive [Unknown]
  - Haemoglobin decreased [Unknown]
  - Oesophagitis [Unknown]
  - Pleural effusion [Unknown]
  - Hiatus hernia [Unknown]
  - Gastrooesophageal reflux disease [Unknown]
  - Asthenia [Unknown]
  - Fatigue [Unknown]
  - Red cell distribution width increased [Unknown]
  - Reticulocyte count increased [Unknown]
  - Red blood cell count decreased [Unknown]

NARRATIVE: CASE EVENT DATE: 2018
